FAERS Safety Report 4437623-X (Version None)
Quarter: 2004Q3

REPORT INFORMATION
  Report Type: 
  Country: None (occurrence: None)
  Receive Date: 20040827
  Receipt Date: 20040816
  Transmission Date: 20050211
  Serious: Yes (Other)
  Sender: FDA-Public Use
  Company Number: 2004228892BR

PATIENT
  Sex: Female

DRUGS (1)
  1. DEPO-PROVERA [Suspect]
     Indication: CONTRACEPTION
     Dosage: 150 MG TRIMESTRAL 1ST INJ, INTRAMUSCULAR
     Route: 030
     Dates: start: 20040101, end: 20040101

REACTIONS (3)
  - AMENORRHOEA [None]
  - BLOOD PRESSURE INCREASED [None]
  - WEIGHT INCREASED [None]
